FAERS Safety Report 7121804-0 (Version None)
Quarter: 2010Q4

REPORT INFORMATION
  Report Type: 
  Country: None (occurrence: None)
  Receive Date: 20101124
  Receipt Date: 20101116
  Transmission Date: 20110411
  Serious: Yes (Hospitalization)
  Sender: FDA-Public Use
  Company Number: CA-ROCHE-736517

PATIENT
  Sex: Female
  Weight: 43.1 kg

DRUGS (2)
  1. BEVACIZUMAB [Suspect]
     Indication: BREAST CANCER
     Dosage: FORM: INFUSION
     Route: 042
     Dates: start: 20100616
  2. CALCIUM [Concomitant]

REACTIONS (11)
  - CATHETER SITE ERYTHEMA [None]
  - CATHETER SITE PAIN [None]
  - CHILLS [None]
  - DIZZINESS [None]
  - GINGIVAL PAIN [None]
  - HEADACHE [None]
  - HEART RATE INCREASED [None]
  - ORAL INFECTION [None]
  - OXYGEN SATURATION DECREASED [None]
  - PYREXIA [None]
  - STOMATITIS [None]
